FAERS Safety Report 8098712-4 (Version None)
Quarter: 2012Q1

REPORT INFORMATION
  Report Type: 
  Country: None (occurrence: None)
  Receive Date: 20120131
  Receipt Date: 20120118
  Transmission Date: 20120608
  Serious: Yes (Hospitalization)
  Sender: FDA-Public Use
  Company Number: CHPA2012US001993

PATIENT
  Sex: Male

DRUGS (1)
  1. EXCEDRIN (MIGRAINE) [Suspect]
     Dosage: UNK DF, UNK
     Route: 048

REACTIONS (1)
  - ULCER [None]
